FAERS Safety Report 9538742 (Version 1)
Quarter: 2013Q2

REPORT INFORMATION
  Report Type: Spontaneous
  Country: US (occurrence: None)
  Receive Date: 20130517
  Receipt Date: 20130517
  Transmission Date: 20140414
  Serious: No
  Sender: FDA-Public Use
  Company Number: 10000430019

PATIENT
  Age: 17 Year
  Sex: Male

DRUGS (3)
  1. VIIBRYD (VILAZODONE HYDROCHLORIDE) (TABLETS) [Suspect]
     Indication: DEPRESSION
     Dosage: 10 MG, 1 IN 1 D
     Route: 048
     Dates: start: 20130207, end: 20130214
  2. LAMICTAL [Concomitant]
  3. VYVANSE [Concomitant]

REACTIONS (2)
  - Headache [None]
  - Off label use [None]
